FAERS Safety Report 22219276 (Version 1)
Quarter: 2023Q2

REPORT INFORMATION
  Report Type: Spontaneous
  Country: US (occurrence: US)
  Receive Date: 20230417
  Receipt Date: 20230417
  Transmission Date: 20230721
  Serious: No
  Sender: FDA-Public Use
  Company Number: US-Ipsen Biopharmaceuticals, Inc.-2023-08606

PATIENT
  Sex: Female
  Weight: 54.480 kg

DRUGS (1)
  1. SOMATULINE DEPOT [Suspect]
     Active Substance: LANREOTIDE ACETATE
     Indication: Neuroendocrine tumour
     Dosage: UNKNOWN
     Route: 065

REACTIONS (4)
  - Muscular dystrophy [Unknown]
  - Palpable purpura [Unknown]
  - Injection site hypertrophy [Unknown]
  - Incorrect route of product administration [Unknown]
